FAERS Safety Report 19734341 (Version 2)
Quarter: 2021Q4

REPORT INFORMATION
  Report Type: Spontaneous
  Country: IT (occurrence: IT)
  Receive Date: 20210824
  Receipt Date: 20211008
  Transmission Date: 20220304
  Serious: Yes (Death, Life-Threatening, Other)
  Sender: FDA-Public Use
  Company Number: IT-AMGEN-ITASP2021128116

PATIENT

DRUGS (7)
  1. PANITUMUMAB [Suspect]
     Active Substance: PANITUMUMAB
     Indication: Colorectal cancer metastatic
     Dosage: UNK
     Route: 065
  2. LEUCOVORIN [Suspect]
     Active Substance: LEUCOVORIN
     Indication: Colorectal cancer metastatic
     Dosage: UNK
     Route: 065
  3. FLUOROURACIL [Suspect]
     Active Substance: FLUOROURACIL
     Indication: Colorectal cancer metastatic
     Dosage: UNK
     Route: 065
  4. IRINOTECAN [Suspect]
     Active Substance: IRINOTECAN
     Indication: Colorectal cancer metastatic
     Dosage: UNK
     Route: 065
  5. OXALIPLATIN [Suspect]
     Active Substance: OXALIPLATIN
     Indication: Colorectal cancer metastatic
     Dosage: UNK
     Route: 065
  6. BEVACIZUMAB [Concomitant]
     Active Substance: BEVACIZUMAB
     Dosage: UNK
  7. CETUXIMAB [Concomitant]
     Active Substance: CETUXIMAB
     Indication: Colorectal cancer metastatic
     Dosage: UNK

REACTIONS (8)
  - Death [Fatal]
  - Neuropathy peripheral [Unknown]
  - Neutropenia [Unknown]
  - Adverse event [Unknown]
  - Blood disorder [Unknown]
  - Diarrhoea [Unknown]
  - Colorectal cancer metastatic [Unknown]
  - Off label use [Unknown]
